FAERS Safety Report 8565512-8 (Version None)
Quarter: 2012Q3

REPORT INFORMATION
  Report Type: 
  Country: None (occurrence: None)
  Receive Date: 20120803
  Receipt Date: 20120724
  Transmission Date: 20120928
  Serious: Yes (Life-Threatening, Other)
  Sender: FDA-Public Use
  Company Number: US-JNJFOC-20120607779

PATIENT
  Sex: Female
  Weight: 38 kg

DRUGS (8)
  1. REMICADE [Suspect]
     Route: 042
     Dates: start: 20120605, end: 20120605
  2. PREDNISONE [Concomitant]
     Route: 065
  3. PREVACID [Concomitant]
     Route: 065
  4. ASACOL [Concomitant]
     Route: 065
  5. REMICADE [Suspect]
     Indication: COLITIS ULCERATIVE
     Route: 042
     Dates: start: 20120501
  6. REMICADE [Suspect]
     Route: 042
     Dates: start: 20120514
  7. TYLENOL (CAPLET) [Concomitant]
     Indication: PREMEDICATION
     Route: 048
     Dates: start: 20120605
  8. BENADRYL [Concomitant]
     Indication: PREMEDICATION
     Route: 048
     Dates: start: 20120605

REACTIONS (2)
  - ANAPHYLACTIC REACTION [None]
  - INFUSION RELATED REACTION [None]
